FAERS Safety Report 6156515-1 (Version None)
Quarter: 2009Q2

REPORT INFORMATION
  Report Type: 
  Country: None (occurrence: None)
  Receive Date: 20090413
  Receipt Date: 20090306
  Transmission Date: 20091009
  Serious: Yes (Other)
  Sender: FDA-Public Use
  Company Number: OPER20090050

PATIENT
  Age: 29 Year
  Sex: Female

DRUGS (2)
  1. OPANA ER [Suspect]
  2. PERCOCET [Suspect]

REACTIONS (1)
  - DRUG DIVERSION [None]
